FAERS Safety Report 10237798 (Version 1)
Quarter: 2014Q2

REPORT INFORMATION
  Report Type: Spontaneous
  Country: US (occurrence: None)
  Receive Date: 20140612
  Receipt Date: 20140612
  Transmission Date: 20141212
  Serious: Yes (Hospitalization)
  Sender: FDA-Public Use
  Company Number: None

PATIENT
  Age: 53 Year
  Sex: Male
  Weight: 107.3 kg

DRUGS (4)
  1. RIFAMPIN [Suspect]
     Indication: SUBCUTANEOUS ABSCESS
     Dosage: M\G BID PO
     Route: 048
     Dates: start: 20140421, end: 20140505
  2. RIFAMPIN [Suspect]
     Indication: STAPHYLOCOCCAL INFECTION
     Dosage: M\G BID PO
     Route: 048
     Dates: start: 20140421, end: 20140505
  3. SULFAMETHOXAZOLE/TRIMETHOPRIM [Suspect]
     Indication: SUBCUTANEOUS ABSCESS
     Dosage: 2 TAB BID PO
     Route: 048
     Dates: start: 20140421, end: 20140505
  4. SULFAMETHOXAZOLE/TRIMETHOPRIM [Suspect]
     Indication: STAPHYLOCOCCAL INFECTION
     Dosage: 2 TAB BID PO
     Route: 048
     Dates: start: 20140421, end: 20140505

REACTIONS (4)
  - Rash [None]
  - Nausea [None]
  - Vomiting [None]
  - Hepatic enzyme increased [None]
